FAERS Safety Report 5022112-4 (Version None)
Quarter: 2006Q2

REPORT INFORMATION
  Report Type: 
  Country: None (occurrence: None)
  Receive Date: 20060609
  Receipt Date: 20060601
  Transmission Date: 20061013
  Serious: Yes (Hospitalization)
  Sender: FDA-Public Use
  Company Number: IT-JNJFOC-20060504540

PATIENT
  Sex: Female

DRUGS (11)
  1. REMICADE [Suspect]
     Indication: CROHN'S DISEASE
     Dosage: 10 INFUSIONS
     Route: 042
  2. AZATHIOPRINE [Concomitant]
     Route: 065
  3. CIPROFLOXACIN [Concomitant]
     Route: 065
  4. METRONIDAZOLE [Concomitant]
     Route: 065
  5. SUPRADYN [Concomitant]
     Route: 065
  6. SUPRADYN [Concomitant]
     Route: 065
  7. SUPRADYN [Concomitant]
     Route: 065
  8. SUPRADYN [Concomitant]
     Route: 065
  9. SUPRADYN [Concomitant]
     Route: 065
  10. SUPRADYN [Concomitant]
     Route: 065
  11. SUPRADYN [Concomitant]
     Route: 065

REACTIONS (1)
  - ENDOMETRIAL CANCER [None]
